FAERS Safety Report 5643675-1 (Version None)
Quarter: 2008Q1

REPORT INFORMATION
  Report Type: 
  Country: None (occurrence: None)
  Receive Date: 20080228
  Receipt Date: 20080205
  Transmission Date: 20080703
  Serious: Yes (Other)
  Sender: FDA-Public Use
  Company Number: US-PFIZER INC-2008012869

PATIENT
  Sex: Female

DRUGS (6)
  1. CHANTIX [Suspect]
     Indication: SMOKING CESSATION THERAPY
     Route: 048
  2. CELEBREX [Concomitant]
  3. LITHIUM CARBONATE [Concomitant]
  4. CRESTOR [Concomitant]
  5. LORAZEPAM [Concomitant]
  6. LITHIUM CARBONATE [Concomitant]

REACTIONS (2)
  - BLOOD CALCIUM INCREASED [None]
  - NEOPLASM [None]
